FAERS Safety Report 15419081 (Version 1)
Quarter: 2018Q3

REPORT INFORMATION
  Report Type: Spontaneous
  Country: BR (occurrence: BR)
  Receive Date: 20180924
  Receipt Date: 20180924
  Transmission Date: 20181010
  Serious: Yes (Hospitalization, Other)
  Sender: FDA-Public Use
  Company Number: BR-SA-2018SA208368

PATIENT
  Age: 88 Year
  Sex: Female

DRUGS (1)
  1. TOUJEO [Suspect]
     Active Substance: INSULIN GLARGINE
     Dosage: UNK, QD
     Route: 065

REACTIONS (4)
  - Product use issue [Unknown]
  - Blood glucose increased [Unknown]
  - Medication error [Unknown]
  - Hospitalisation [Unknown]
